FAERS Safety Report 23818067 (Version 3)
Quarter: 2024Q2

REPORT INFORMATION
  Report Type: Spontaneous
  Country: US (occurrence: US)
  Receive Date: 20240506
  Receipt Date: 20240619
  Transmission Date: 20240715
  Serious: No
  Sender: FDA-Public Use
  Company Number: US-BIOGEN-2024BI01250990

PATIENT
  Sex: Female

DRUGS (3)
  1. SKYCLARYS [Suspect]
     Active Substance: OMAVELOXOLONE
     Indication: Friedreich^s ataxia
     Route: 050
     Dates: start: 20231026
  2. SKYCLARYS [Suspect]
     Active Substance: OMAVELOXOLONE
     Route: 050
     Dates: start: 20231026
  3. SKYCLARYS [Suspect]
     Active Substance: OMAVELOXOLONE
     Route: 050
     Dates: start: 20231026

REACTIONS (8)
  - Hypotension [Unknown]
  - Asthenia [Unknown]
  - Cold sweat [Unknown]
  - Dizziness [Unknown]
  - Heart rate increased [Unknown]
  - Feeling abnormal [Unknown]
  - Hepatic enzyme increased [Unknown]
  - Headache [Recovered/Resolved]
